FAERS Safety Report 6214461-9 (Version None)
Quarter: 2009Q2

REPORT INFORMATION
  Report Type: 
  Country: None (occurrence: None)
  Receive Date: 20090602
  Receipt Date: 20090522
  Transmission Date: 20091009
  Serious: Yes (Hospitalization, Other)
  Sender: FDA-Public Use
  Company Number: 2009AP002122

PATIENT
  Age: 15 Year
  Sex: Female

DRUGS (5)
  1. RISPERIDONE [Suspect]
     Dosage: 0.75 MG;QD ; 0.5 MG;QD ; 0.75 MG;QD
  2. FLUOXETINE HCL [Suspect]
     Dosage: 20 MG;QD ; 40 MG;QD ; 60 MG
  3. OLANZAPINE [Suspect]
     Dosage: 5 MG;HS ; 2.5 MG;HS
  4. CLONAZEPAM [Concomitant]
  5. QUETIAPINE FUMARATE [Concomitant]

REACTIONS (3)
  - ANXIETY [None]
  - DRUG INTERACTION [None]
  - ELECTROCARDIOGRAM QT PROLONGED [None]
